FAERS Safety Report 11176180 (Version 1)
Quarter: 2015Q2

REPORT INFORMATION
  Report Type: Report from Study
  Country: US (occurrence: US)
  Receive Date: 20150609
  Receipt Date: 20150609
  Transmission Date: 20150821
  Serious: Yes (Hospitalization)
  Sender: FDA-Public Use
  Company Number: US-INTERMUNE, INC.-201506IM017587

PATIENT
  Age: 77 Year
  Sex: Female

DRUGS (2)
  1. ESBRIET [Suspect]
     Active Substance: PIRFENIDONE
     Route: 048
     Dates: start: 20150101
  2. ESBRIET [Suspect]
     Active Substance: PIRFENIDONE
     Dosage: 2403 MG
     Route: 048

REACTIONS (3)
  - Decreased appetite [Unknown]
  - Gastric disorder [Unknown]
  - Constipation [Unknown]

NARRATIVE: CASE EVENT DATE: 201505
